FAERS Safety Report 18717160 (Version 3)
Quarter: 2021Q1

REPORT INFORMATION
  Report Type: Spontaneous
  Country: JP (occurrence: JP)
  Receive Date: 20210108
  Receipt Date: 20210304
  Transmission Date: 20210419
  Serious: Yes (Hospitalization)
  Sender: FDA-Public Use
  Company Number: JP-MYOVANT SCIENCES GMBH-2020MYSCI1200008

PATIENT
  Age: 35 Year
  Sex: Female

DRUGS (14)
  1. FERROUS SODIUM CITRATE [Concomitant]
     Active Substance: SODIUM FERROUS CITRATE
     Indication: ANAEMIA
     Dosage: 50 MILLIGRAM, QD
     Route: 048
     Dates: start: 202008, end: 20200930
  2. ACELIO [Concomitant]
     Active Substance: ACETAMINOPHEN
     Indication: PYREXIA
     Dosage: UNK
     Route: 041
     Dates: start: 20200905, end: 20210111
  3. RELUMINA [Suspect]
     Active Substance: RELUGOLIX
     Indication: MENORRHAGIA
     Dosage: 40 MILLIGRAM
     Route: 048
     Dates: start: 20200929, end: 20210105
  4. RELUMINA [Suspect]
     Active Substance: RELUGOLIX
     Indication: ANAEMIA
     Dosage: 40 MILLIGRAM
     Route: 048
     Dates: start: 20210108
  5. MAGNESIUM /07349401/ [Concomitant]
     Active Substance: MAGNESIUM OXIDE
     Indication: CONSTIPATION
     Dosage: 990 MILLIGRAM, QD
     Route: 048
     Dates: start: 20200919
  6. RELUMINA [Suspect]
     Active Substance: RELUGOLIX
     Indication: MENSTRUAL DISORDER
  7. REBAMIPIDE [Concomitant]
     Active Substance: REBAMIPIDE
     Indication: PRODUCT USED FOR UNKNOWN INDICATION
     Dosage: 100 MILLIGRAM, QD
     Route: 048
     Dates: start: 202008, end: 20200930
  8. AMOXICILLIN                        /00249602/ [Concomitant]
     Active Substance: AMOXICILLIN
     Indication: SALPINGITIS
     Dosage: 750 MILLIGRAM, QD
     Route: 048
     Dates: start: 20200917, end: 20200930
  9. RELUMINA [Suspect]
     Active Substance: RELUGOLIX
     Indication: SALPINGITIS
  10. CALONAL [Concomitant]
     Active Substance: ACETAMINOPHEN
     Indication: PYREXIA
  11. NEXIUM [Concomitant]
     Active Substance: ESOMEPRAZOLE MAGNESIUM
     Indication: GASTRITIS
     Dosage: 20 MILLIGRAM, QD
     Route: 048
     Dates: start: 20200909, end: 20200930
  12. FLAGYL [Concomitant]
     Active Substance: METRONIDAZOLE\METRONIDAZOLE HYDROCHLORIDE
     Indication: SALPINGITIS
     Dosage: 1000 MILLIGRAM, QD
     Route: 048
     Dates: start: 20200925, end: 20201008
  13. CALONAL [Concomitant]
     Active Substance: ACETAMINOPHEN
     Indication: PAIN
     Dosage: UNK
     Route: 048
     Dates: start: 202008
  14. DALACIN                            /00166002/ [Concomitant]
     Active Substance: CLINDAMYCIN HYDROCHLORIDE
     Indication: SALPINGITIS
     Dosage: 600 MILLIGRAM, QD
     Route: 048
     Dates: start: 20200917, end: 20200930

REACTIONS (1)
  - Genital haemorrhage [Recovered/Resolved]

NARRATIVE: CASE EVENT DATE: 20200930
